FAERS Safety Report 8022409-X (Version None)
Quarter: 2012Q1

REPORT INFORMATION
  Report Type: 
  Country: None (occurrence: None)
  Receive Date: 20120104
  Receipt Date: 20111228
  Transmission Date: 20120608
  Serious: Yes (Other)
  Sender: FDA-Public Use
  Company Number: US-ROCHE-GNE319785

PATIENT
  Sex: Male

DRUGS (4)
  1. DIOVAN [Concomitant]
     Indication: HYPERTENSION
     Route: 048
  2. AMLODIPINE [Concomitant]
     Indication: HYPERTENSION
     Route: 048
  3. FLECAINIDE ACETATE [Concomitant]
     Indication: ARRHYTHMIA
  4. LUCENTIS [Suspect]
     Indication: AGE-RELATED MACULAR DEGENERATION
     Dates: start: 20110430, end: 20110610

REACTIONS (3)
  - VITREOUS FLOATERS [None]
  - EYE INFECTION [None]
  - VISUAL ACUITY REDUCED [None]
